FAERS Safety Report 5282212-0 (Version None)
Quarter: 2007Q1

REPORT INFORMATION
  Report Type: 
  Country: None (occurrence: None)
  Receive Date: 20070330
  Receipt Date: 20070319
  Transmission Date: 20070707
  Serious: Yes (Other)
  Sender: FDA-Public Use
  Company Number: SE-PFIZER INC-2007021523

PATIENT
  Sex: Female

DRUGS (3)
  1. SUTENT [Suspect]
  2. ANERVAN [Concomitant]
  3. ANTIDEPRESSANTS [Concomitant]

REACTIONS (1)
  - CEREBRAL HAEMORRHAGE [None]
